FAERS Safety Report 21965616 (Version 2)
Quarter: 2023Q1

REPORT INFORMATION
  Report Type: Other
  Country: US (occurrence: None)
  Receive Date: 20230208
  Receipt Date: 20230215
  Transmission Date: 20230418
  Serious: No
  Sender: FDA-Public Use
  Company Number: US-ROCHE-3279697

PATIENT
  Age: 47 Year
  Sex: Female
  Weight: 96.702 kg

DRUGS (8)
  1. OCREVUS [Suspect]
     Active Substance: OCRELIZUMAB
     Indication: Multiple sclerosis
     Route: 042
     Dates: start: 202204
  2. BACLOFEN [Concomitant]
     Active Substance: BACLOFEN
  3. ZYRTEC [Concomitant]
     Active Substance: CETIRIZINE HYDROCHLORIDE
  4. YASMIN [Concomitant]
     Active Substance: DROSPIRENONE\ETHINYL ESTRADIOL
  5. VALACYCLOVIR [Concomitant]
     Active Substance: VALACYCLOVIR HYDROCHLORIDE
  6. ZYRTEC [Concomitant]
     Active Substance: CETIRIZINE HYDROCHLORIDE
  7. ALLEGRA [Concomitant]
     Active Substance: FEXOFENADINE HYDROCHLORIDE
  8. VITAMIN D3 [Concomitant]
     Active Substance: CHOLECALCIFEROL

REACTIONS (5)
  - Diarrhoea [Not Recovered/Not Resolved]
  - Throat irritation [Recovered/Resolved]
  - Headache [Recovered/Resolved]
  - Flushing [Recovered/Resolved]
  - Herpes virus infection [Recovered/Resolved]

NARRATIVE: CASE EVENT DATE: 20220401
